FAERS Safety Report 17651839 (Version 1)
Quarter: 2020Q2

REPORT INFORMATION
  Report Type: Spontaneous
  Country: DE (occurrence: DE)
  Receive Date: 20200409
  Receipt Date: 20200409
  Transmission Date: 20200713
  Serious: Yes (Hospitalization)
  Sender: FDA-Public Use
  Company Number: DE-TEVA-2020-DE-1221803

PATIENT
  Age: 67 Year
  Sex: Female

DRUGS (2)
  1. VALSARTAN-RATIOPHARM COMP. 80/12.5 MG FILMTABLETTEN [Suspect]
     Active Substance: HYDROCHLOROTHIAZIDE\VALSARTAN
     Dosage: 1 DF CONTAINS 80 MG VALSARTAN AND 12.5 MG HYDROCHLOROTHIAZIDE, DAILY INTAKE
     Route: 048
     Dates: start: 20130411, end: 201807
  2. VALSARTAN. [Suspect]
     Active Substance: VALSARTAN
     Route: 048
     Dates: start: 20120703

REACTIONS (3)
  - Colectomy [Unknown]
  - Product impurity [Unknown]
  - Hepatic cancer [Unknown]

NARRATIVE: CASE EVENT DATE: 2016
